FAERS Safety Report 23757096 (Version 4)
Quarter: 2024Q4

REPORT INFORMATION
  Report Type: Spontaneous
  Country: PR (occurrence: PR)
  Receive Date: 20240418
  Receipt Date: 20241014
  Transmission Date: 20250114
  Serious: No
  Sender: PFIZER
  Company Number: PR-PFIZER INC-202400085312

PATIENT
  Age: 49 Year
  Sex: Female

DRUGS (3)
  1. VELSIPITY [Suspect]
     Active Substance: ETRASIMOD ARGININE
     Dosage: 2 MG
  2. VELSIPITY [Suspect]
     Active Substance: ETRASIMOD ARGININE
     Dosage: 4 MG, 1X/DAY
     Route: 048
  3. ASPIRIN [Suspect]
     Active Substance: ASPIRIN
     Dosage: UNK

REACTIONS (2)
  - Haemorrhage [Unknown]
  - Off label use [Unknown]
